FAERS Safety Report 13614498 (Version 3)
Quarter: 2017Q4

REPORT INFORMATION
  Report Type: Spontaneous
  Country: US (occurrence: US)
  Receive Date: 20170606
  Receipt Date: 20171026
  Transmission Date: 20180320
  Serious: Yes (Disabling, Other)
  Sender: FDA-Public Use
  Company Number: US-SUN PHARMACEUTICAL INDUSTRIES LTD-2017US-142144

PATIENT
  Sex: Male

DRUGS (1)
  1. BACTRIM [Suspect]
     Active Substance: SULFAMETHOXAZOLE\TRIMETHOPRIM
     Indication: RHINITIS
     Dosage: 1 DF, SINGLE
     Route: 065

REACTIONS (6)
  - Pancreatic injury [Unknown]
  - Liver injury [Unknown]
  - Blood glucose increased [Unknown]
  - Impaired quality of life [Unknown]
  - Facial paralysis [Unknown]
  - Angioedema [Recovering/Resolving]
